FAERS Safety Report 20430104 (Version 1)
Quarter: 2022Q1

REPORT INFORMATION
  Report Type: Report from Study
  Country: NL (occurrence: NL)
  Receive Date: 20220204
  Receipt Date: 20220204
  Transmission Date: 20220423
  Serious: Yes (Hospitalization)
  Sender: FDA-Public Use
  Company Number: NL-SERVIER-S20003362

PATIENT

DRUGS (8)
  1. ONCASPAR [Suspect]
     Active Substance: PEGASPARGASE
     Indication: Acute lymphocytic leukaemia
     Dosage: 1125 IU, QD
     Route: 065
     Dates: start: 20200403, end: 20200403
  2. DAUNORUBICIN [Suspect]
     Active Substance: DAUNORUBICIN
     Indication: Acute lymphocytic leukaemia
     Dosage: 30 MG, QD
     Route: 065
     Dates: start: 20200331, end: 20200407
  3. VINCRISTINE [Suspect]
     Active Substance: VINCRISTINE
     Indication: Acute lymphocytic leukaemia
     Dosage: 1 MG, QD
     Route: 065
     Dates: start: 20200331, end: 20200407
  4. TN UNSPECIFIED [Concomitant]
     Indication: Acute lymphocytic leukaemia
     Dosage: 30 MG, QD
     Route: 048
     Dates: start: 20200331, end: 20200413
  5. TN UNSPECIFIED [Concomitant]
     Dosage: 25 MG, QD
     Route: 037
     Dates: start: 20200331, end: 20200413
  6. TN UNSPECIFIED [Concomitant]
     Indication: Acute lymphocytic leukaemia
     Dosage: 600 MG, QD
     Route: 065
     Dates: start: 20200331, end: 20200407
  7. TN UNSPECIFIED [Concomitant]
     Indication: Acute lymphocytic leukaemia
     Dosage: 15 MG, QID
     Route: 037
     Dates: start: 20200331, end: 20200331
  8. TN UNSPECIFIED [Concomitant]
     Indication: Acute lymphocytic leukaemia
     Dosage: 28 ?G, QD
     Route: 065
     Dates: start: 20191107, end: 20191204

REACTIONS (1)
  - Abdominal pain [Recovered/Resolved]

NARRATIVE: CASE EVENT DATE: 20200410
